FAERS Safety Report 6996909-5 (Version None)
Quarter: 2010Q3

REPORT INFORMATION
  Report Type: 
  Country: None (occurrence: None)
  Receive Date: 20100918
  Receipt Date: 20090810
  Transmission Date: 20110219
  Serious: Yes (Other)
  Sender: FDA-Public Use
  Company Number: US-WYE-H10528009

PATIENT
  Age: 54 Year
  Sex: Male

DRUGS (5)
  1. EFFEXOR XR [Suspect]
     Indication: DEPRESSION
     Dosage: STARTED ON EFFEXOR XR ON AN UNKNOWN DATE, STOPPED ON AN UNKNOWN DATE, RESTARTED AGAIN ON AN UNKNOWN
     Route: 048
  2. SERTRALINE HYDROCHLORIDE [Suspect]
     Dosage: UNKNOWN
  3. VALPROATE SEMISODIUM [Concomitant]
     Dosage: UNKNOWN
  4. NEURONTIN [Concomitant]
     Dosage: 900 MG, UNSPECIFIED FREQUENCY
  5. KEPPRA [Concomitant]
     Dosage: UNKNOWN

REACTIONS (2)
  - CONVULSION [None]
  - DRUG EFFECT DECREASED [None]
